FAERS Safety Report 5844523-7 (Version None)
Quarter: 2008Q3

REPORT INFORMATION
  Report Type: 
  Country: None (occurrence: None)
  Receive Date: 20080812
  Receipt Date: 20080731
  Transmission Date: 20090109
  Serious: Yes (Hospitalization)
  Sender: FDA-Public Use
  Company Number: 237286J08USA

PATIENT
  Age: 58 Year
  Sex: Male
  Weight: 62.1428 kg

DRUGS (4)
  1. REBIF [Suspect]
     Indication: MULTIPLE SCLEROSIS
     Dosage: 44 MCG, 3 IN 1 WEEKS, SUBCUTANEOUS
     Route: 058
     Dates: start: 20080416, end: 20080801
  2. GABAPENTIN [Concomitant]
  3. AMITRIPTLINE HYDROCHLORIDE TAB [Concomitant]
  4. METOPROLOL TARTRATE [Concomitant]

REACTIONS (6)
  - ASTHENIA [None]
  - DIZZINESS [None]
  - DYSURIA [None]
  - FALL [None]
  - LOSS OF CONSCIOUSNESS [None]
  - PYREXIA [None]
